FAERS Safety Report 7544909-9 (Version None)
Quarter: 2011Q2

REPORT INFORMATION
  Report Type: 
  Country: None (occurrence: None)
  Receive Date: 20110614
  Receipt Date: 20100108
  Transmission Date: 20111010
  Serious: Yes (Death, Other)
  Sender: FDA-Public Use
  Company Number: US-BAYER-201010424NA

PATIENT
  Age: 58 Year
  Sex: Male
  Weight: 98 kg

DRUGS (20)
  1. HEPARIN [Concomitant]
     Dosage: 30,000 UNITS
     Route: 042
     Dates: start: 20051101, end: 20051101
  2. GENTAMICIN SULFATE [Concomitant]
     Dosage: 90 MG, BID
     Route: 042
     Dates: start: 20051031
  3. METOPROLOL SUCCINATE [Concomitant]
     Dosage: 12.5 MG, BID
     Route: 048
     Dates: start: 20051030
  4. COUMADIN [Concomitant]
     Route: 048
  5. VANCOMYCIN [Concomitant]
     Dosage: 1500 MG, QD
     Route: 042
     Dates: start: 20051029, end: 20051112
  6. TRASYLOL [Suspect]
     Indication: CORONARY ARTERY BYPASS
     Dosage: 100 CC LOADING DOSE
     Route: 042
     Dates: start: 20051101, end: 20051101
  7. NAFCILLIN [Concomitant]
     Dosage: 12 G, QD
     Route: 042
     Dates: start: 20051030, end: 20051106
  8. FENTANYL [Concomitant]
     Dosage: 27 CCS
     Route: 042
     Dates: start: 20051101, end: 20051101
  9. TRASYLOL [Suspect]
     Indication: AORTIC VALVE REPLACEMENT
     Dosage: 1 ML INITIAL TEST DOSE
     Route: 042
     Dates: start: 20051101, end: 20051101
  10. ENALAPRIL MALEATE [Concomitant]
     Dosage: 20 MG, QD
     Route: 048
  11. HEPARIN [Concomitant]
     Dosage: 25,000 UNITS/250 ML
     Route: 042
     Dates: start: 20051030
  12. RED BLOOD CELLS [Concomitant]
     Dosage: 1 U, ONCE
     Route: 042
     Dates: start: 20051101
  13. TORSEMIDE [Concomitant]
     Route: 048
  14. FUROSEMIDE [Concomitant]
     Dosage: 40 MG, ONCE
     Route: 042
     Dates: start: 20051101
  15. NITROGLYCERIN [Concomitant]
     Dosage: 5 CCS/HOUR
     Route: 042
     Dates: start: 20051101, end: 20051101
  16. CEFAZOLIN [Concomitant]
     Dosage: 100 MG, TID
     Route: 042
     Dates: start: 20051101
  17. ATENOLOL [Concomitant]
     Route: 048
  18. VERSED [Concomitant]
     Dosage: 9 MG
     Route: 042
     Dates: start: 20051101, end: 20051101
  19. INSULIN [Concomitant]
     Dosage: 6 CCS/HOUR
     Route: 042
     Dates: start: 20051101, end: 20051101
  20. PROTAMINE SULFATE [Concomitant]
     Dosage: 300 MG, UNK
     Route: 042
     Dates: start: 20051101, end: 20051101

REACTIONS (12)
  - UNEVALUABLE EVENT [None]
  - RENAL IMPAIRMENT [None]
  - PAIN [None]
  - EMOTIONAL DISTRESS [None]
  - STRESS [None]
  - ANXIETY [None]
  - DEATH [None]
  - RENAL FAILURE [None]
  - INJURY [None]
  - RENAL INJURY [None]
  - FEAR [None]
  - ANHEDONIA [None]
